FAERS Safety Report 8901751 (Version 2)
Quarter: 2012Q4

REPORT INFORMATION
  Report Type: Spontaneous
  Country: US (occurrence: None)
  Receive Date: 20121105
  Receipt Date: 20121114
  Transmission Date: 20130627
  Serious: Yes (Death)
  Sender: FDA-Public Use
  Company Number: UTC-024845

PATIENT
  Age: 63 Year
  Sex: Female
  Weight: 58.18 kg

DRUGS (3)
  1. TYVASO (6 MICROGRAM, AEROSOL FOR INHALATION) (TREPROSTINIL SODIUM) [Suspect]
     Indication: CHRONIC PULMONARY HEART DISEASE
     Route: 055
     Dates: start: 20120127
  2. REVATIO (SILDENAFIL CITRATE) [Concomitant]
  3. TRACLEER (BOSENTAN) [Concomitant]

REACTIONS (1)
  - Right ventricular failure [None]
